FAERS Safety Report 5472409-9 (Version None)
Quarter: 2007Q4

REPORT INFORMATION
  Report Type: 
  Country: None (occurrence: None)
  Receive Date: 20071001
  Receipt Date: 20070921
  Transmission Date: 20080405
  Serious: Yes (Death, Hospitalization, Other)
  Sender: FDA-Public Use
  Company Number: CH-ELI_LILLY_AND_COMPANY-CH200702004481

PATIENT
  Age: 23 Year
  Sex: Male

DRUGS (3)
  1. HALOPERIDOL [Concomitant]
     Indication: ACUTE PSYCHOSIS
     Dosage: UNK, UNKNOWN
     Route: 065
  2. ZYPREXA [Suspect]
     Indication: ACUTE PSYCHOSIS
     Dosage: 40 MG, UNKNOWN
     Route: 065
     Dates: start: 20060101
  3. ZYPREXA [Suspect]
     Dosage: 20 MG, UNKNOWN
     Route: 065
     Dates: start: 20061017, end: 20060101

REACTIONS (7)
  - CARDIAC ARREST [None]
  - HEPATIC INFECTION [None]
  - OEDEMA [None]
  - OVERDOSE [None]
  - PYREXIA [None]
  - RASH [None]
  - SUICIDAL BEHAVIOUR [None]
